FAERS Safety Report 6370964-8 (Version None)
Quarter: 2009Q3

REPORT INFORMATION
  Report Type: 
  Country: None (occurrence: None)
  Receive Date: 20090923
  Receipt Date: 20070914
  Transmission Date: 20100115
  Serious: Yes (Other)
  Sender: FDA-Public Use
  Company Number: US-ASTRAZENECA-2006UW22630

PATIENT
  Sex: Female
  Weight: 116 kg

DRUGS (18)
  1. SEROQUEL [Suspect]
     Indication: INSOMNIA
     Dosage: 25-500 MG
     Route: 048
     Dates: start: 20020731
  2. SEROQUEL [Suspect]
     Indication: DEPRESSION
     Dosage: 25-500 MG
     Route: 048
     Dates: start: 20020731
  3. SEROQUEL [Suspect]
     Route: 048
     Dates: start: 20030101, end: 20050101
  4. SEROQUEL [Suspect]
     Route: 048
     Dates: start: 20030101, end: 20050101
  5. HALDOL [Concomitant]
     Route: 048
  6. METHADONE [Concomitant]
     Dates: start: 19971001
  7. PANLOR SS [Concomitant]
     Route: 048
  8. CODEINE SULFATE [Concomitant]
     Route: 048
  9. SYNTHROID [Concomitant]
     Route: 048
  10. WELLBUTRIN [Concomitant]
     Route: 048
  11. TOPAMAX [Concomitant]
     Dosage: 50-200 MG
     Route: 048
  12. HYDROCHLOROTHIAZIDE [Concomitant]
  13. LUNESTA [Concomitant]
  14. CELEXA [Concomitant]
     Dosage: 20-30 MG
     Route: 048
  15. DOXEPIN HCL [Concomitant]
     Dosage: 10-50 MG
     Route: 048
  16. AMBIEN [Concomitant]
     Route: 048
  17. SONATA [Concomitant]
     Route: 048
  18. LITHIUM CARBONATE [Concomitant]
     Route: 048

REACTIONS (2)
  - HYPERGLYCAEMIA [None]
  - PANCREATITIS [None]
